FAERS Safety Report 6219412-9 (Version None)
Quarter: 2009Q2

REPORT INFORMATION
  Report Type: 
  Country: None (occurrence: None)
  Receive Date: 20090602
  Receipt Date: 20090521
  Transmission Date: 20091009
  Serious: Yes (Other)
  Sender: FDA-Public Use
  Company Number: 2009S1006235

PATIENT
  Age: 52 Year
  Sex: Female
  Weight: 68.0396 kg

DRUGS (3)
  1. AMNESTEEM [Suspect]
     Indication: SWEAT GLAND INFECTION
     Dosage: 20 MG;DAILY;ORAL 20 MG;DAILY
     Route: 048
  2. CLARAVIS [Suspect]
     Indication: SWEAT GLAND INFECTION
     Dosage: ORAL
     Route: 048
  3. CLARAVIS [Suspect]
     Indication: SWEAT GLAND INFECTION
     Dosage: 20 MG;DAILY;ORAL
     Route: 048

REACTIONS (2)
  - ANGLE CLOSURE GLAUCOMA [None]
  - DRUG INEFFECTIVE [None]
